FAERS Safety Report 8965642 (Version 2)
Quarter: 2013Q1

REPORT INFORMATION
  Report Type: Spontaneous
  Country: US (occurrence: None)
  Receive Date: 20121206
  Receipt Date: 20130102
  Transmission Date: 20140127
  Serious: Yes (Other)
  Sender: FDA-Public Use
  Company Number: JPI-P-025921

PATIENT
  Age: 34 Year
  Sex: Male
  Weight: 71.22 kg

DRUGS (7)
  1. XYREM [Suspect]
     Indication: CATAPLEXY
     Dosage: 4.5 GM (2.25 GM, 2 IN 1 D), ORAL
     Route: 048
     Dates: start: 20120124, end: 2012
  2. XYREM [Suspect]
     Indication: SOMNOLENCE
     Dosage: 4.5 GM (2.25 GM, 2 IN 1 D), ORAL
     Route: 048
     Dates: start: 20120124, end: 2012
  3. RABEPRAZOLE SODIUM [Concomitant]
  4. FINASTERIDE [Concomitant]
  5. ALPRAZOLAM [Concomitant]
  6. OXYCODONE [Concomitant]
  7. MORPHINE SULFATE [Concomitant]

REACTIONS (12)
  - Abdominal pain [None]
  - Diarrhoea [None]
  - Blood potassium decreased [None]
  - Paraesthesia [None]
  - Muscle twitching [None]
  - Gastroenteritis viral [None]
  - Feeling of body temperature change [None]
  - Asthenia [None]
  - Muscle spasms [None]
  - Nausea [None]
  - Retching [None]
  - Dizziness [None]
